FAERS Safety Report 23762973 (Version 1)
Quarter: 2024Q2

REPORT INFORMATION
  Report Type: Spontaneous
  Country: US (occurrence: US)
  Receive Date: 20240419
  Receipt Date: 20240419
  Transmission Date: 20240716
  Serious: No
  Sender: FDA-Public Use
  Company Number: US-SA-SAC20240415000247

PATIENT
  Sex: Male
  Weight: 20.41 kg

DRUGS (9)
  1. DUPIXENT [Suspect]
     Active Substance: DUPILUMAB
     Indication: Eczema infantile
     Dosage: 300 MG, Q4W
     Route: 058
  2. TRIAMCINOLONE ACETONIDE [Concomitant]
     Active Substance: TRIAMCINOLONE ACETONIDE
  3. HYDROXYZINE HYDROCHLORIDE [Concomitant]
     Active Substance: HYDROXYZINE HYDROCHLORIDE
  4. BETAMETHASONE DIPROPIONATE [Concomitant]
     Active Substance: BETAMETHASONE DIPROPIONATE
  5. PROTOPIC [Concomitant]
     Active Substance: TACROLIMUS
  6. EPINEPHRINE [Concomitant]
     Active Substance: EPINEPHRINE
  7. HYDROCORTISONE [Concomitant]
     Active Substance: HYDROCORTISONE
  8. CEPHALEXIN [Concomitant]
     Active Substance: CEPHALEXIN
  9. TRIAMCINOLONE ACETONIDE [Concomitant]
     Active Substance: TRIAMCINOLONE ACETONIDE

REACTIONS (1)
  - Eczema [Not Recovered/Not Resolved]
